FAERS Safety Report 6518938-8 (Version None)
Quarter: 2009Q4

REPORT INFORMATION
  Report Type: 
  Country: None (occurrence: None)
  Receive Date: 20091228
  Receipt Date: 20091216
  Transmission Date: 20100525
  Serious: Yes (Death)
  Sender: FDA-Public Use
  Company Number: FR-BRISTOL-MYERS SQUIBB COMPANY-14897573

PATIENT
  Age: 64 Year
  Sex: Male
  Weight: 54 kg

DRUGS (7)
  1. ERBITUX [Suspect]
     Indication: HYPOPHARYNGEAL CANCER
     Route: 042
     Dates: start: 20091026, end: 20091026
  2. FLUOROURACIL [Suspect]
     Indication: HYPOPHARYNGEAL CANCER
     Route: 042
     Dates: start: 20091026, end: 20091030
  3. CISPLATIN [Concomitant]
     Indication: HYPOPHARYNGEAL CANCER
     Route: 042
     Dates: start: 20091026, end: 20091029
  4. ZOPHREN [Concomitant]
     Indication: ANTIEMETIC SUPPORTIVE CARE
     Dosage: SOLUTION FOR INJECTION
     Route: 042
     Dates: start: 20091026, end: 20091030
  5. POLARAMINE [Concomitant]
     Indication: PREMEDICATION
     Dosage: SOLUTION FOR INJECTION
     Route: 042
     Dates: start: 20091026, end: 20091026
  6. SOLU-MEDROL [Concomitant]
     Indication: ANTIEMETIC SUPPORTIVE CARE
     Route: 042
     Dates: start: 20091026, end: 20091030
  7. AUGMENTIN [Concomitant]
     Indication: ABSCESS NECK
     Dosage: 1GM TABLET
     Route: 048
     Dates: start: 20091023, end: 20091030

REACTIONS (4)
  - HAEMATEMESIS [None]
  - INTESTINAL ISCHAEMIA [None]
  - PNEUMONIA ASPIRATION [None]
  - SHOCK [None]
